FAERS Safety Report 13401476 (Version 2)
Quarter: 2017Q4

REPORT INFORMATION
  Report Type: Spontaneous
  Country: US (occurrence: US)
  Receive Date: 20170404
  Receipt Date: 20171221
  Transmission Date: 20180320
  Serious: Yes (Death, Hospitalization, Other)
  Sender: FDA-Public Use
  Company Number: US-JNJFOC-20170401847

PATIENT
  Age: 80 Year
  Sex: Female

DRUGS (1)
  1. IMBRUVICA [Suspect]
     Active Substance: IBRUTINIB
     Indication: PRODUCT USED FOR UNKNOWN INDICATION
     Route: 048
     Dates: end: 20170220

REACTIONS (10)
  - Pneumonia bacterial [Unknown]
  - Chronic obstructive pulmonary disease [Fatal]
  - Haemoglobin decreased [Unknown]
  - Blood potassium decreased [Unknown]
  - Asthenia [Unknown]
  - Bacterial sepsis [Fatal]
  - Intestinal obstruction [Unknown]
  - Hernia [Unknown]
  - Haematemesis [Unknown]
  - Cellulitis [Unknown]

NARRATIVE: CASE EVENT DATE: 20170220
